FAERS Safety Report 16251506 (Version 6)
Quarter: 2019Q2

REPORT INFORMATION
  Report Type: Spontaneous
  Country: PT (occurrence: PT)
  Receive Date: 20190429
  Receipt Date: 20190617
  Transmission Date: 20190711
  Serious: Yes (Hospitalization, Other)
  Sender: FDA-Public Use
  Company Number: PT-MYLANLABS-2019M1039215

PATIENT
  Age: 11 Year
  Sex: Male

DRUGS (11)
  1. LEVETIRACETAM. [Concomitant]
     Active Substance: LEVETIRACETAM
     Indication: EPILEPSY
     Dosage: UNK
     Route: 065
  2. AMOXICILLIN. [Concomitant]
     Active Substance: AMOXICILLIN
     Indication: PHARYNGITIS STREPTOCOCCAL
     Dosage: UNK
     Route: 065
  3. VALPROIC ACID. [Interacting]
     Active Substance: VALPROIC ACID
     Indication: EPILEPSY
     Dosage: UNK
     Route: 065
  4. CLARITHROMYCIN. [Concomitant]
     Active Substance: CLARITHROMYCIN
     Indication: PHARYNGITIS STREPTOCOCCAL
     Dosage: UNK
     Route: 065
  5. AMOXICILLIN. [Concomitant]
     Active Substance: AMOXICILLIN
     Indication: PHARYNGITIS
  6. CLEMASTIN [Concomitant]
     Active Substance: CLEMASTINE
     Indication: FACE OEDEMA
  7. CLEMASTIN [Concomitant]
     Active Substance: CLEMASTINE
     Indication: ANGIOEDEMA
  8. CLEMASTIN [Concomitant]
     Active Substance: CLEMASTINE
     Indication: CHEILITIS
  9. LAMOTRIGINE. [Suspect]
     Active Substance: LAMOTRIGINE
     Indication: EPILEPSY
     Dosage: UNK
     Route: 065
  10. CLARITHROMYCIN. [Concomitant]
     Active Substance: CLARITHROMYCIN
     Indication: PHARYNGITIS
  11. CLEMASTIN [Concomitant]
     Active Substance: CLEMASTINE
     Indication: LYMPHADENOPATHY
     Dosage: UNK

REACTIONS (14)
  - Leukopenia [Recovering/Resolving]
  - Drug interaction [Recovered/Resolved]
  - Cheilitis [Recovered/Resolved]
  - Conjunctivitis [Recovering/Resolving]
  - Pyrexia [Recovered/Resolved]
  - Lip erosion [Recovering/Resolving]
  - Angioedema [Recovered/Resolved]
  - Lymphadenopathy [Recovered/Resolved]
  - Drug reaction with eosinophilia and systemic symptoms [Recovered/Resolved]
  - Rash [Recovered/Resolved]
  - Condition aggravated [Recovered/Resolved]
  - Conjunctival hyperaemia [Recovered/Resolved]
  - Thrombocytopenia [Recovering/Resolving]
  - Transaminases increased [Recovered/Resolved]
